FAERS Safety Report 11965965 (Version 2)
Quarter: 2016Q1

REPORT INFORMATION
  Report Type: Report from Study
  Country: US (occurrence: US)
  Receive Date: 20160127
  Receipt Date: 20160331
  Transmission Date: 20160526
  Serious: Yes (Hospitalization)
  Sender: FDA-Public Use
  Company Number: US-UCBSA-2016002254

PATIENT
  Sex: Male

DRUGS (7)
  1. LACOSAMIDE [Suspect]
     Active Substance: LACOSAMIDE
     Indication: SEIZURE
     Dosage: 100MG/3 DAILY (100MG TWO IN THE MORNING AND ONE IN NIGHT)
  2. DILANTIN [Concomitant]
     Active Substance: PHENYTOIN
     Indication: PRODUCT USED FOR UNKNOWN INDICATION
     Dosage: UNK
  3. THIAMINE. [Concomitant]
     Active Substance: THIAMINE
     Indication: PRODUCT USED FOR UNKNOWN INDICATION
     Dosage: UNK
  4. TOPAMAX [Concomitant]
     Active Substance: TOPIRAMATE
     Indication: PRODUCT USED FOR UNKNOWN INDICATION
     Dosage: UNK
  5. LACOSAMIDE [Suspect]
     Active Substance: LACOSAMIDE
     Dosage: 100 MG, 2X/DAY (BID)
  6. KEPPRA [Suspect]
     Active Substance: LEVETIRACETAM
     Indication: SEIZURE
     Dosage: 1500 MG, 2X/DAY (BID)
  7. NEURONTIN [Concomitant]
     Active Substance: GABAPENTIN
     Indication: PRODUCT USED FOR UNKNOWN INDICATION
     Dosage: UNK

REACTIONS (2)
  - Seizure [Unknown]
  - Cognitive disorder [Unknown]
